FAERS Safety Report 6146289-2 (Version None)
Quarter: 2009Q2

REPORT INFORMATION
  Report Type: 
  Country: None (occurrence: None)
  Receive Date: 20090403
  Receipt Date: 20090403
  Transmission Date: 20091009
  Serious: Yes (Hospitalization)
  Sender: FDA-Public Use
  Company Number: None

PATIENT
  Sex: Female
  Weight: 48.9 kg

DRUGS (12)
  1. CYCLOPHOSPHAMIDE [Suspect]
     Dosage: 1028 MG
  2. DOXIL [Suspect]
     Dosage: 55 MG
  3. PREDNISONE [Suspect]
     Dosage: 250 MG
  4. RITUXIMAB (MOAB C2B8 ANTI CD20, CHIMERIC) [Suspect]
     Dosage: 514 MG
  5. VINCRISTINE SULFATE [Suspect]
     Dosage: 2 MG
  6. ABH [Concomitant]
  7. DILAUDID [Concomitant]
  8. GLYBURIDE [Concomitant]
  9. INSULIN [Concomitant]
  10. NYSTATIN [Concomitant]
  11. PROPOXYPHENE HCL CAP [Concomitant]
  12. PROTONIX [Concomitant]

REACTIONS (5)
  - BLOOD ALKALINE PHOSPHATASE INCREASED [None]
  - BLOOD BILIRUBIN INCREASED [None]
  - PANCREATITIS [None]
  - PLATELET COUNT DECREASED [None]
  - WHITE BLOOD CELL COUNT DECREASED [None]
